FAERS Safety Report 6229748-3 (Version None)
Quarter: 2009Q2

REPORT INFORMATION
  Report Type: 
  Country: None (occurrence: None)
  Receive Date: 20090615
  Receipt Date: 20090603
  Transmission Date: 20091009
  Serious: Yes (Hospitalization)
  Sender: FDA-Public Use
  Company Number: PHHY2009GB12036

PATIENT
  Sex: Male

DRUGS (3)
  1. CLOZARIL [Suspect]
     Indication: SCHIZOPHRENIA
     Dosage: UNK
     Route: 048
     Dates: start: 20030327, end: 20081231
  2. CLOZARIL [Suspect]
     Dosage: 450 MG/DAY
  3. CLOZARIL [Suspect]
     Dosage: 175 MG/DAY

REACTIONS (11)
  - AGGRESSION [None]
  - ANTIPSYCHOTIC DRUG LEVEL INCREASED [None]
  - BLOOD CREATINE PHOSPHOKINASE INCREASED [None]
  - CATATONIA [None]
  - COMMUNICATION DISORDER [None]
  - DEHYDRATION [None]
  - MENTAL DISORDER [None]
  - MUTISM [None]
  - SALIVARY HYPERSECRETION [None]
  - SCHIZOPHRENIA [None]
  - TACHYCARDIA [None]
